FAERS Safety Report 9096790 (Version 1)
Quarter: 2013Q1

REPORT INFORMATION
  Report Type: Spontaneous
  Country: IE (occurrence: IE)
  Receive Date: 20130211
  Receipt Date: 20130211
  Transmission Date: 20140127
  Serious: Yes (Death, Hospitalization, Other)
  Sender: FDA-Public Use
  Company Number: IE-BAYER-2013-014422

PATIENT
  Sex: Male

DRUGS (6)
  1. CIPROFLOXACIN [Suspect]
     Indication: PSEUDOMONAS INFECTION
     Dosage: UNK
     Dates: start: 2009
  2. CIPROFLOXACIN [Suspect]
     Indication: RESPIRATORY TRACT INFECTION
  3. AZITHROMYCIN [Suspect]
     Indication: PSEUDOMONAS INFECTION
  4. AZITHROMYCIN [Suspect]
     Indication: RESPIRATORY TRACT INFECTION
  5. COLOMYCIN [Concomitant]
     Indication: PSEUDOMONAS INFECTION
     Route: 049
  6. TOBRAMYCIN [Concomitant]
     Indication: PSEUDOMONAS INFECTION

REACTIONS (3)
  - Pseudomonas infection [Not Recovered/Not Resolved]
  - Drug ineffective [Not Recovered/Not Resolved]
  - Pulmonary function test decreased [Fatal]
